FAERS Safety Report 4722771-7 (Version None)
Quarter: 2005Q3

REPORT INFORMATION
  Report Type: 
  Country: None (occurrence: None)
  Receive Date: 20050722
  Receipt Date: 20050711
  Transmission Date: 20060218
  Serious: Yes (Death)
  Sender: FDA-Public Use
  Company Number: US-JNJFOC-20050200558

PATIENT
  Sex: Female

DRUGS (7)
  1. DOXIL [Suspect]
     Indication: ENDOMETRIAL CANCER
     Route: 042
  2. AMBIEN [Concomitant]
  3. PERCOCET [Concomitant]
  4. PERCOCET [Concomitant]
  5. ASPIRIN [Concomitant]
  6. VICODIN [Concomitant]
  7. VICODIN [Concomitant]

REACTIONS (3)
  - ENCEPHALOPATHY [None]
  - ENDOMETRIAL CANCER [None]
  - MALIGNANT NEOPLASM PROGRESSION [None]
